FAERS Safety Report 10619441 (Version 1)
Quarter: 2014Q4

REPORT INFORMATION
  Report Type: Spontaneous
  Country: CA (occurrence: CA)
  Receive Date: 20141202
  Receipt Date: 20141202
  Transmission Date: 20150529
  Serious: Yes (Other)
  Sender: FDA-Public Use
  Company Number: CA-BAYER-2014-174057

PATIENT
  Age: 22 Year
  Sex: Female

DRUGS (2)
  1. MIRENA [Suspect]
     Active Substance: LEVONORGESTREL
     Indication: MENORRHAGIA
  2. MIRENA [Suspect]
     Active Substance: LEVONORGESTREL
     Indication: CONTRACEPTION
     Dosage: UNK
     Dates: end: 20141119

REACTIONS (4)
  - Hydronephrosis [Not Recovered/Not Resolved]
  - Urethral spasm [Not Recovered/Not Resolved]
  - Genital haemorrhage [Recovered/Resolved]
  - Urinary tract infection [Recovered/Resolved]
